FAERS Safety Report 15080145 (Version 1)
Quarter: 2018Q2

REPORT INFORMATION
  Report Type: Report from Study
  Country: JP (occurrence: JP)
  Receive Date: 20180627
  Receipt Date: 20180627
  Transmission Date: 20180711
  Serious: Yes (Hospitalization, Other)
  Sender: FDA-Public Use
  Company Number: JP-ALXN-A201802439AA

PATIENT
  Age: 42 Year
  Sex: Male

DRUGS (22)
  1. ROCEPHIN [Concomitant]
     Active Substance: CEFTRIAXONE SODIUM
     Indication: PROPHYLAXIS
     Dosage: 4 G, UNK
     Route: 041
  2. EDIROL [Concomitant]
     Active Substance: ELDECALCITOL
     Indication: COMPRESSION FRACTURE
     Dosage: 0.75 ?G, QD
     Route: 048
  3. METHYCOBAL [Concomitant]
     Active Substance: METHYLCOBALAMIN
     Indication: NEUROPATHY PERIPHERAL
     Dosage: 500 ?G, TID
     Route: 048
  4. SOLIRIS [Suspect]
     Active Substance: ECULIZUMAB
     Dosage: 1200 MG, DAILY
     Route: 042
     Dates: start: 20180406
  5. TRYPTANOL                          /00002202/ [Concomitant]
     Active Substance: AMITRIPTYLINE
     Indication: NEUROPATHY PERIPHERAL
     Dosage: 20 MG, TID
     Route: 048
  6. FERROUS CITRATE [Concomitant]
     Active Substance: FERROUS CITRATE
     Indication: IRON DEFICIENCY ANAEMIA
     Dosage: 50 MG, QD
     Route: 048
  7. LIXIANA [Concomitant]
     Active Substance: EDOXABAN TOSYLATE
     Indication: JUGULAR VEIN THROMBOSIS
     Dosage: 60 MG, QD
     Route: 048
  8. DRUG NOT ADMINISTERED [Concomitant]
     Active Substance: UNSPECIFIED INGREDIENT
     Indication: PROPHYLAXIS
     Dosage: 20 MG, QD
     Route: 048
  9. DOMPERIDONE [Concomitant]
     Active Substance: DOMPERIDONE
     Indication: IRRITABLE BOWEL SYNDROME
     Dosage: 10 MG, PRN
     Route: 048
  10. NITROPEN [Concomitant]
     Active Substance: NITROGLYCERIN
     Indication: PRINZMETAL ANGINA
     Dosage: 0.3 MG, PRN
     Route: 048
  11. ROSUVASTATIN. [Concomitant]
     Active Substance: ROSUVASTATIN
     Indication: DYSLIPIDAEMIA
     Dosage: 5 MG, QD
     Route: 048
  12. SOLIRIS [Suspect]
     Active Substance: ECULIZUMAB
     Indication: MYASTHENIA GRAVIS
     Dosage: 900 MG, SINGLE
     Route: 042
     Dates: start: 20180223, end: 20180223
  13. ASPARA POTASSIUM [Concomitant]
     Active Substance: POTASSIUM ASPARTATE
     Indication: HYPOKALAEMIA
     Dosage: 2.5 G, TID
     Route: 048
  14. BONOTEO [Concomitant]
     Active Substance: MINODRONIC ACID
     Indication: SPINAL COMPRESSION FRACTURE
     Dosage: 50 MG, UNK
     Route: 048
  15. LULICON [Concomitant]
     Active Substance: LULICONAZOLE
     Indication: TINEA INFECTION
     Dosage: UNK, QD
     Route: 062
  16. CANDESARTAN. [Concomitant]
     Active Substance: CANDESARTAN
     Indication: HYPERTENSION
     Dosage: 4 MG, QD
     Route: 048
  17. JANUVIA [Concomitant]
     Active Substance: SITAGLIPTIN PHOSPHATE
     Indication: DIABETES MELLITUS
     Dosage: 100 MG, QD
     Route: 048
     Dates: start: 2016
  18. RIVOTRIL [Concomitant]
     Active Substance: CLONAZEPAM
     Indication: NEUROPATHY PERIPHERAL
     Dosage: 0.5 MG, QD
     Route: 048
  19. SOLIRIS [Suspect]
     Active Substance: ECULIZUMAB
     Dosage: 900 MG, UNK
     Route: 042
     Dates: start: 20180316
  20. DAIPHEN [Concomitant]
     Active Substance: SULFAMETHOXAZOLE\TRIMETHOPRIM
     Indication: PROPHYLAXIS
     Dosage: 1 DF, QD
     Route: 048
  21. DOGMATYL [Concomitant]
     Active Substance: SULPIRIDE
     Indication: IRRITABLE BOWEL SYNDROME
     Dosage: 100 MG, TID
     Route: 048
  22. STROCAIN                           /00130301/ [Concomitant]
     Indication: IRRITABLE BOWEL SYNDROME
     Dosage: 5 MG, PRN
     Route: 048

REACTIONS (3)
  - Myasthenia gravis [Recovering/Resolving]
  - Influenza [Recovered/Resolved]
  - Nasopharyngitis [Recovered/Resolved]

NARRATIVE: CASE EVENT DATE: 20180228
